FAERS Safety Report 13766789 (Version 1)
Quarter: 2017Q3

REPORT INFORMATION
  Report Type: Spontaneous
  Country: None (occurrence: US)
  Receive Date: 20170719
  Receipt Date: 20170719
  Transmission Date: 20171127
  Serious: No
  Sender: FDA-Public Use
  Company Number: None

PATIENT
  Age: 52 Year
  Sex: Male
  Weight: 58.68 kg

DRUGS (1)
  1. CISPLATIN. [Suspect]
     Active Substance: CISPLATIN
     Dates: end: 20170703

REACTIONS (5)
  - Nausea [None]
  - Weight decreased [None]
  - Fatigue [None]
  - Stomatitis [None]
  - Heart rate increased [None]

NARRATIVE: CASE EVENT DATE: 20170710
